FAERS Safety Report 20410761 (Version 5)
Quarter: 2022Q3

REPORT INFORMATION
  Report Type: Report from Study
  Country: US (occurrence: US)
  Receive Date: 20220201
  Receipt Date: 20220809
  Transmission Date: 20221027
  Serious: Yes (Other)
  Sender: FDA-Public Use
  Company Number: US-BAYER-2022A014191

PATIENT
  Age: 56 Year
  Sex: Female
  Weight: 108 kg

DRUGS (24)
  1. BETASERON [Suspect]
     Active Substance: INTERFERON BETA-1B
     Indication: Multiple sclerosis
     Dosage: 0.25 MG, QOD
     Route: 058
     Dates: start: 20130201
  2. AZELASTINE HYDROCHLORIDE [Concomitant]
     Active Substance: AZELASTINE HYDROCHLORIDE
     Dosage: UNK
  3. BACLOFEN [Concomitant]
     Active Substance: BACLOFEN
     Dosage: 10 MG, TID
     Route: 048
  4. BACLOFEN [Concomitant]
     Active Substance: BACLOFEN
     Dosage: 10 MG, PRN
  5. BUPROPION HYDROCHLORIDE [Concomitant]
     Active Substance: BUPROPION HYDROCHLORIDE
     Route: 048
  6. CITRACAL D FORT [Concomitant]
  7. CLONAZEPAM [Concomitant]
     Active Substance: CLONAZEPAM
     Dosage: 1 MG, TID
     Route: 048
  8. CRANBERRY 400 [Concomitant]
     Route: 048
  9. ESTRADIOL [Concomitant]
     Active Substance: ESTRADIOL
     Route: 048
  10. GABAPENTIN [Concomitant]
     Active Substance: GABAPENTIN
     Dosage: 300 MG, TID
     Route: 048
  11. GABAPENTIN [Concomitant]
     Active Substance: GABAPENTIN
     Dosage: 200 MG, BID
  12. MAGNESIUM [Concomitant]
     Active Substance: MAGNESIUM
     Route: 048
  13. METOPROLOL SUCCINATE [Concomitant]
     Active Substance: METOPROLOL SUCCINATE
     Route: 048
  14. MOMETASONE FUROATE [Concomitant]
     Active Substance: MOMETASONE FUROATE
     Route: 045
  15. OMEPRAZOLE [Concomitant]
     Active Substance: OMEPRAZOLE
     Route: 048
  16. PREMARIN [Concomitant]
     Active Substance: ESTROGENS, CONJUGATED
     Route: 067
  17. PREMARIN [Concomitant]
     Active Substance: ESTROGENS, CONJUGATED
     Dosage: UNK
     Route: 048
  18. YUVAFEM [Concomitant]
     Active Substance: ESTRADIOL HEMIHYDRATE
     Route: 067
  19. ZYRTEC [Concomitant]
     Active Substance: CETIRIZINE HYDROCHLORIDE
     Route: 048
  20. VITAMIN D NOS [Concomitant]
     Active Substance: VITAMIN D NOS
     Dosage: 10000 U, QD
  21. VITAMIN D NOS [Concomitant]
     Active Substance: VITAMIN D NOS
     Dosage: UNK
  22. CALCIUM [Concomitant]
     Active Substance: CALCIUM
  23. LEXAPRO [Concomitant]
     Active Substance: ESCITALOPRAM OXALATE
     Dosage: 20 MG, QD
  24. WELLBUTRIN XL [Concomitant]
     Active Substance: BUPROPION HYDROCHLORIDE
     Dosage: 300 MG, QD

REACTIONS (41)
  - Multiple sclerosis relapse [None]
  - Hemianaesthesia [None]
  - White blood cell count decreased [Not Recovered/Not Resolved]
  - Red blood cell count decreased [Not Recovered/Not Resolved]
  - Exposure to SARS-CoV-2 [None]
  - Neutropenia [None]
  - Hypothyroidism [None]
  - Hypokalaemia [None]
  - Multiple sclerosis [None]
  - Hypertension [None]
  - Tremor [None]
  - Paraesthesia [None]
  - Dry eye [None]
  - Dry mouth [None]
  - Influenza like illness [None]
  - Pain [None]
  - Chills [None]
  - Dysphagia [None]
  - Urinary tract infection [None]
  - Balance disorder [None]
  - Muscle spasms [None]
  - Depression [None]
  - Insomnia [None]
  - Abnormal loss of weight [None]
  - Gastrooesophageal reflux disease [None]
  - Acute sinusitis [None]
  - Rhinitis allergic [None]
  - Anaemia [None]
  - Depression [None]
  - Bone disorder [None]
  - Chondropathy [None]
  - Dyspareunia [None]
  - Dysphagia [None]
  - Hypertension [None]
  - Nausea [None]
  - Vomiting [None]
  - Palpitations [None]
  - Postural tremor [None]
  - Osteoporosis [None]
  - Tachycardia [None]
  - Underweight [None]

NARRATIVE: CASE EVENT DATE: 20210907
